FAERS Safety Report 16371008 (Version 1)
Quarter: 2019Q2

REPORT INFORMATION
  Report Type: Spontaneous
  Country: US (occurrence: US)
  Receive Date: 20190423
  Receipt Date: 20190423
  Transmission Date: 20190711
  Serious: Yes (Hospitalization)
  Sender: FDA-Public Use
  Company Number: None

PATIENT
  Age: 70 Year
  Sex: Female

DRUGS (1)
  1. AFINITOR [Suspect]
     Active Substance: EVEROLIMUS
     Indication: OVARIAN CANCER
     Route: 048
     Dates: start: 201903

REACTIONS (4)
  - Diarrhoea [None]
  - Small intestinal obstruction [None]
  - Clostridium difficile infection [None]
  - Metabolic disorder [None]

NARRATIVE: CASE EVENT DATE: 20190409
